FAERS Safety Report 14897351 (Version 2)
Quarter: 2018Q2

REPORT INFORMATION
  Report Type: Report from Study
  Country: US (occurrence: US)
  Receive Date: 20180515
  Receipt Date: 20180523
  Transmission Date: 20180711
  Serious: Yes (Death)
  Sender: FDA-Public Use
  Company Number: US-PUMA BIOTECHNOLOGY, LTD.-2018US002796

PATIENT

DRUGS (3)
  1. NERLYNX [Suspect]
     Active Substance: NERATINIB
     Dosage: 6 TABLETS, DAILY
     Dates: start: 20180316
  2. NERLYNX [Suspect]
     Active Substance: NERATINIB
     Dosage: LOWERED DOSE
     Route: 048
  3. NERLYNX [Suspect]
     Active Substance: NERATINIB
     Indication: BRAIN CANCER METASTATIC
     Dosage: 6 TABLETS, DAILY
     Route: 048
     Dates: start: 20180201

REACTIONS (4)
  - Fatigue [Unknown]
  - Brain cancer metastatic [Unknown]
  - Death [Fatal]
  - Off label use [Unknown]
